FAERS Safety Report 8771003 (Version 3)
Quarter: 2013Q4

REPORT INFORMATION
  Report Type: Spontaneous
  Country: FR (occurrence: FR)
  Receive Date: 20120906
  Receipt Date: 20131031
  Transmission Date: 20140711
  Serious: Yes (Hospitalization)
  Sender: FDA-Public Use
  Company Number: FR-009507513-1011FRA00127

PATIENT
  Age: 56 Year
  Sex: Male

DRUGS (10)
  1. EMEND [Suspect]
     Route: 048
     Dates: start: 20100823
  2. FLUOROURACIL [Suspect]
     Indication: HYPOPHARYNGEAL CANCER
     Route: 042
     Dates: start: 20100823
  3. CISPLATIN [Suspect]
     Indication: HYPOPHARYNGEAL CANCER
     Route: 042
     Dates: start: 20100823
  4. ERBITUX [Suspect]
     Route: 042
     Dates: start: 20100823
  5. ZOPHREN (ONDANSETRON) [Suspect]
     Dates: start: 20100823
  6. SOLU-MEDROL [Suspect]
  7. POLARAMINE [Suspect]
  8. AERIUS [Suspect]
     Indication: RASH
  9. PRIMPERAN [Suspect]
  10. CILENGITIDE [Concomitant]
     Indication: HYPOPHARYNGEAL CANCER

REACTIONS (2)
  - Hepatitis acute [Unknown]
  - Thrombocytopenia [Unknown]
